FAERS Safety Report 9372103 (Version 1)
Quarter: 2013Q2

REPORT INFORMATION
  Report Type: Spontaneous
  Country: US (occurrence: US)
  Receive Date: 20130627
  Receipt Date: 20130627
  Transmission Date: 20140414
  Serious: No
  Sender: FDA-Public Use
  Company Number: US-PFIZER INC-2013189470

PATIENT
  Age: 34 Year
  Sex: Female
  Weight: 94 kg

DRUGS (5)
  1. EFFEXOR XR [Suspect]
     Indication: PHOBIA
     Dosage: UNK, 1X/DAY
     Route: 048
     Dates: end: 2002
  2. EFFEXOR XR [Suspect]
     Indication: PANIC ATTACK
  3. PROZAC [Concomitant]
     Dosage: UNK
  4. TRAZODONE [Concomitant]
     Dosage: UNK
  5. CELEXA [Concomitant]
     Dosage: UNK

REACTIONS (7)
  - Anxiety [Unknown]
  - Activities of daily living impaired [Unknown]
  - Off label use [Unknown]
  - Feeling abnormal [Unknown]
  - Discomfort [Unknown]
  - Social phobia [Unknown]
  - Fear [Unknown]
